FAERS Safety Report 15187939 (Version 3)
Quarter: 2018Q3

REPORT INFORMATION
  Report Type: Spontaneous
  Country: PL (occurrence: PL)
  Receive Date: 20180724
  Receipt Date: 20180907
  Transmission Date: 20181010
  Serious: Yes (Death, Other)
  Sender: FDA-Public Use
  Company Number: PL-ROCHE-2159029

PATIENT
  Age: 70 Year
  Sex: Male

DRUGS (4)
  1. PERFALGAN [Suspect]
     Active Substance: ACETAMINOPHEN
     Indication: PREMEDICATION
     Dosage: ONCE
     Route: 042
     Dates: start: 20180718, end: 20180718
  2. DEXAVENT [Concomitant]
     Indication: PREMEDICATION
     Route: 042
     Dates: start: 20180718, end: 20180718
  3. GAZYVARO [Suspect]
     Active Substance: OBINUTUZUMAB
     Indication: PRODUCT USED FOR UNKNOWN INDICATION
     Dosage: FIRST DOSE
     Route: 065
  4. CLEMASTIN [Concomitant]
     Active Substance: CLEMASTINE
     Indication: PREMEDICATION
     Dosage: 1 AMPOULE; ONCE
     Route: 042
     Dates: start: 20180718, end: 20180718

REACTIONS (4)
  - C-reactive protein increased [Unknown]
  - Septic shock [Fatal]
  - Agranulocytosis [Unknown]
  - Procalcitonin increased [Unknown]

NARRATIVE: CASE EVENT DATE: 20180722
